FAERS Safety Report 4289681-3 (Version None)
Quarter: 2004Q1

REPORT INFORMATION
  Report Type: 
  Country: None (occurrence: None)
  Receive Date: 20040203
  Receipt Date: 20030624
  Transmission Date: 20041129
  Serious: Yes (Other)
  Sender: FDA-Public Use
  Company Number: 200319667BWH

PATIENT
  Age: 76 Year
  Sex: Female
  Weight: 50.3493 kg

DRUGS (10)
  1. AVELOX [Suspect]
     Indication: RESPIRATORY TRACT INFECTION
     Dosage: 400 MG, QD, NI
     Dates: start: 20030619, end: 20030623
  2. IRON [Concomitant]
  3. PAXIL [Concomitant]
  4. MAXZIDE [Concomitant]
  5. CLARITIN [Concomitant]
  6. COUMADIN [Concomitant]
  7. ACIDOPHILUS [Concomitant]
  8. MULTIVITAMIN [Concomitant]
  9. FIBERCON [Concomitant]
  10. LEVAQUIN [Concomitant]

REACTIONS (6)
  - DISORIENTATION [None]
  - DIZZINESS [None]
  - FATIGUE [None]
  - LETHARGY [None]
  - NAUSEA [None]
  - NERVOUSNESS [None]
